FAERS Safety Report 21747107 (Version 15)
Quarter: 2023Q4

REPORT INFORMATION
  Report Type: Report from Study
  Country: CO (occurrence: CO)
  Receive Date: 20221219
  Receipt Date: 20231011
  Transmission Date: 20240110
  Serious: Yes (Life-Threatening, Hospitalization, Other)
  Sender: FDA-Public Use
  Company Number: CO-ABBVIE-4235354

PATIENT
  Age: 66 Year
  Sex: Female

DRUGS (6)
  1. VENCLEXTA [Suspect]
     Active Substance: VENETOCLAX
     Indication: Chronic lymphocytic leukaemia
     Dosage: FORM STRENGTH WAS 100 MILLIGRAMS?LAST ADMIN DATE WAS 2022
     Route: 048
     Dates: start: 20221121
  2. VENCLEXTA [Suspect]
     Active Substance: VENETOCLAX
     Indication: Chronic lymphocytic leukaemia
     Dosage: FORM STRENGTH WAS 100 MILLIGRAMS
     Route: 048
     Dates: start: 20230527, end: 20230618
  3. VENCLEXTA [Suspect]
     Active Substance: VENETOCLAX
     Indication: Chronic lymphocytic leukaemia
     Dosage: FORM STRENGTH WAS 100 MILLIGRAMS?FIRST ADMIN DATE WAS FEB 2023
     Route: 048
     Dates: end: 20230207
  4. VENCLEXTA [Suspect]
     Active Substance: VENETOCLAX
     Indication: Chronic lymphocytic leukaemia
     Dosage: FORM STRENGTH WAS 100 MILLIGRAMS
     Route: 048
     Dates: start: 20221223
  5. PREDNISOLONE [Concomitant]
     Active Substance: PREDNISOLONE
     Indication: Chemotherapy
     Dates: start: 20230502
  6. OBINUTUZUMAB [Concomitant]
     Active Substance: OBINUTUZUMAB
     Indication: Chemotherapy
     Dates: start: 20230502

REACTIONS (37)
  - Pulmonary oedema [Recovering/Resolving]
  - Bacterial infection [Recovered/Resolved]
  - Deafness [Recovering/Resolving]
  - Cardiac disorder [Recovered/Resolved]
  - Pulmonary thrombosis [Recovering/Resolving]
  - Muscle disorder [Recovering/Resolving]
  - Gait disturbance [Recovering/Resolving]
  - Exposure to communicable disease [Unknown]
  - Infection susceptibility increased [Recovering/Resolving]
  - Speech disorder [Recovering/Resolving]
  - Hypersensitivity [Not Recovered/Not Resolved]
  - Respiratory disorder [Recovering/Resolving]
  - Respiratory tract infection [Not Recovered/Not Resolved]
  - Muscle atrophy [Unknown]
  - Immunodeficiency [Recovering/Resolving]
  - Haemoglobin decreased [Not Recovered/Not Resolved]
  - Myringitis [Recovering/Resolving]
  - Allergic cough [Recovered/Resolved]
  - Urinary tract infection [Recovered/Resolved]
  - Lung disorder [Not Recovered/Not Resolved]
  - Productive cough [Recovered/Resolved]
  - Urinary tract infection [Not Recovered/Not Resolved]
  - Weight decreased [Recovering/Resolving]
  - Throat irritation [Not Recovered/Not Resolved]
  - Eye infection [Not Recovered/Not Resolved]
  - Feeling abnormal [Recovering/Resolving]
  - General physical health deterioration [Recovering/Resolving]
  - Malaise [Recovering/Resolving]
  - Cough [Recovering/Resolving]
  - Urinary tract infection [Recovered/Resolved]
  - Dehydration [Not Recovered/Not Resolved]
  - Hypotension [Not Recovered/Not Resolved]
  - Haemoglobin decreased [Recovered/Resolved]
  - Somnolence [Recovering/Resolving]
  - Vomiting [Recovering/Resolving]
  - Food aversion [Recovering/Resolving]
  - Asthenia [Recovered/Resolved]

NARRATIVE: CASE EVENT DATE: 20221201
